FAERS Safety Report 8146410-0 (Version None)
Quarter: 2012Q1

REPORT INFORMATION
  Report Type: 
  Country: None (occurrence: None)
  Receive Date: 20120217
  Receipt Date: 20120105
  Transmission Date: 20120608
  Serious: No
  Sender: FDA-Public Use
  Company Number: US-ABBOTT-12P-163-0889774-00

PATIENT
  Sex: Female
  Weight: 55.388 kg

DRUGS (5)
  1. LISINOPRIL [Concomitant]
     Indication: PRODUCT USED FOR UNKNOWN INDICATION
  2. ASPIRIN [Concomitant]
     Indication: PRODUCT USED FOR UNKNOWN INDICATION
  3. SIMCOR [Suspect]
     Indication: BLOOD CHOLESTEROL ABNORMAL
     Dosage: AT HOUR OF SLEEP FOR 9 MONTHS THEN IN AM
     Dates: start: 20101201, end: 20111201
  4. METOPROLOL TARTRATE [Concomitant]
     Indication: PRODUCT USED FOR UNKNOWN INDICATION
  5. EFFIENT [Concomitant]
     Indication: PRODUCT USED FOR UNKNOWN INDICATION

REACTIONS (8)
  - SLEEP DISORDER [None]
  - MUSCULOSKELETAL DISCOMFORT [None]
  - PRURITUS [None]
  - SKIN BURNING SENSATION [None]
  - MUSCULAR WEAKNESS [None]
  - ERYTHEMA [None]
  - FLUSHING [None]
  - ABDOMINAL DISCOMFORT [None]
